FAERS Safety Report 7805072-X (Version None)
Quarter: 2011Q4

REPORT INFORMATION
  Report Type: 
  Country: None (occurrence: None)
  Receive Date: 20111010
  Receipt Date: 20110927
  Transmission Date: 20120403
  Serious: Yes (Hospitalization)
  Sender: FDA-Public Use
  Company Number: RU-VIIV HEALTHCARE LIMITED-B0753856A

PATIENT
  Sex: Male

DRUGS (3)
  1. RALTEGRAVIR [Suspect]
     Indication: HIV INFECTION
     Route: 048
     Dates: start: 20110819
  2. ABACAVIR SULFATE AND LAMIVUDINE [Suspect]
     Indication: HIV INFECTION
     Route: 048
     Dates: start: 20110819
  3. RIFABUTIN [Concomitant]
     Indication: TUBERCULOSIS
     Dosage: 300MG PER DAY
     Route: 048
     Dates: start: 20110728

REACTIONS (1)
  - OVERDOSE [None]
